FAERS Safety Report 6311336-1 (Version None)
Quarter: 2009Q3

REPORT INFORMATION
  Report Type: 
  Country: None (occurrence: None)
  Receive Date: 20090817
  Receipt Date: 20090804
  Transmission Date: 20100115
  Serious: Yes (Hospitalization)
  Sender: FDA-Public Use
  Company Number: PHHY2009NO15306

PATIENT
  Sex: Male

DRUGS (1)
  1. EXJADE [Suspect]
     Indication: THALASSAEMIA BETA
     Dosage: 1000 MG DAILY
     Dates: start: 20080304, end: 20090323

REACTIONS (7)
  - ABDOMINAL PAIN [None]
  - C-REACTIVE PROTEIN INCREASED [None]
  - DUODENAL ULCER PERFORATION [None]
  - LAPAROTOMY [None]
  - PLATELET COUNT INCREASED [None]
  - SEPSIS [None]
  - TACHYCARDIA [None]
